FAERS Safety Report 25003287 (Version 1)
Quarter: 2025Q1

REPORT INFORMATION
  Report Type: Spontaneous
  Country: AU (occurrence: AU)
  Receive Date: 20250224
  Receipt Date: 20250224
  Transmission Date: 20250409
  Serious: Yes (Other)
  Sender: ACCORD
  Company Number: None

PATIENT
  Age: 78 Year
  Sex: Female

DRUGS (10)
  1. EZETIMIBE [Suspect]
     Active Substance: EZETIMIBE
     Indication: Product used for unknown indication
  2. RIVAROXABAN [Suspect]
     Active Substance: RIVAROXABAN
     Indication: Product used for unknown indication
  3. LEVOTHYROXINE [Suspect]
     Active Substance: LEVOTHYROXINE
     Indication: Product used for unknown indication
  4. ATORVASTATIN [Suspect]
     Active Substance: ATORVASTATIN
     Indication: Product used for unknown indication
  5. BUDESONIDE\FORMOTEROL FUMARATE [Suspect]
     Active Substance: BUDESONIDE\FORMOTEROL FUMARATE
     Indication: Product used for unknown indication
  6. CANDESARTAN CILEXETIL\HYDROCHLOROTHIAZIDE [Suspect]
     Active Substance: CANDESARTAN CILEXETIL\HYDROCHLOROTHIAZIDE
     Indication: Product used for unknown indication
  7. ESOMEPRAZOLE [Suspect]
     Active Substance: ESOMEPRAZOLE
     Indication: Product used for unknown indication
  8. ALBUTEROL SULFATE [Suspect]
     Active Substance: ALBUTEROL SULFATE
     Indication: Product used for unknown indication
  9. SOTALOL HYDROCHLORIDE [Suspect]
     Active Substance: SOTALOL HYDROCHLORIDE
     Indication: Product used for unknown indication
  10. SPIRONOLACTONE [Suspect]
     Active Substance: SPIRONOLACTONE
     Indication: Product used for unknown indication

REACTIONS (1)
  - Long QT syndrome [Unknown]
